FAERS Safety Report 5378718-6 (Version None)
Quarter: 2007Q3

REPORT INFORMATION
  Report Type: 
  Country: None (occurrence: None)
  Receive Date: 20070705
  Receipt Date: 20070628
  Transmission Date: 20080115
  Serious: Yes (Life-Threatening, Hospitalization)
  Sender: FDA-Public Use
  Company Number: B0464497A

PATIENT
  Age: 68 Year
  Sex: Male
  Weight: 80 kg

DRUGS (5)
  1. ARIXTRA [Suspect]
     Indication: PROPHYLAXIS
     Route: 058
     Dates: start: 20070316, end: 20070317
  2. DIOVAN HCT [Concomitant]
  3. CEFUROXIME [Concomitant]
     Indication: ANTIBIOTIC PROPHYLAXIS
     Dosage: 750MG THREE TIMES PER DAY
  4. PARACETAMOL [Concomitant]
     Indication: PAIN
     Dosage: 1G FOUR TIMES PER DAY
  5. MORPHINE SUL INJ [Concomitant]
     Dosage: 2MG TWICE PER DAY
     Dates: start: 20070316, end: 20070316

REACTIONS (3)
  - CHEST PAIN [None]
  - DYSPNOEA [None]
  - PULMONARY EMBOLISM [None]
